FAERS Safety Report 23407599 (Version 1)
Quarter: 2024Q1

REPORT INFORMATION
  Report Type: Other
  Country: CZ (occurrence: CZ)
  Receive Date: 20240117
  Receipt Date: 20240117
  Transmission Date: 20240410
  Serious: Yes (Other)
  Sender: FDA-Public Use
  Company Number: CZ-drreddys-LIT/CZR/23/0175195

PATIENT
  Age: 37 Year
  Sex: Female

DRUGS (14)
  1. AZACITIDINE [Suspect]
     Active Substance: AZACITIDINE
     Indication: Acute myeloid leukaemia
     Dosage: 10 CYCLES
     Dates: start: 201901, end: 201911
  2. AZACITIDINE [Suspect]
     Active Substance: AZACITIDINE
     Dosage: 1ST CYCLE INITIATED ACCORDING TO THE VLALE-A STUDY
     Dates: start: 202210, end: 202303
  3. AZACITIDINE [Suspect]
     Active Substance: AZACITIDINE
     Dosage: SECOND CYCLE OF THERAPY
  4. AZACITIDINE [Suspect]
     Active Substance: AZACITIDINE
     Dosage: 4TH CYCLE OF THERAPY SHORTENED TO 5 DAYS
  5. AZACITIDINE [Suspect]
     Active Substance: AZACITIDINE
     Dosage: COMPLETED A TOTAL OF 6 CYCLES OF VEN AND AZA THERAPY
     Dates: end: 202303
  6. VENETOCLAX [Suspect]
     Active Substance: VENETOCLAX
     Indication: Acute myeloid leukaemia
     Dosage: 1ST CYCLE INITIATED ACCORDING TO THE VLALE-A STUDY SCHEME 5+14 (AZA+VEN)
  7. VENETOCLAX [Suspect]
     Active Substance: VENETOCLAX
     Dosage: GRADUAL DOSE ESCALATION (SECOND CYCLE OF THERAPY)
  8. VENETOCLAX [Suspect]
     Active Substance: VENETOCLAX
     Dosage: 4TH CYCLE OF THERAPY SHORTENED TO 14 DAYS
  9. VENETOCLAX [Suspect]
     Active Substance: VENETOCLAX
     Dosage: SUBSEQUENT REDUCTION OF THE VEN DOSE TO 100 MG DAILY FROM THE 5TH CYCLE ONWARDS
  10. VENETOCLAX [Suspect]
     Active Substance: VENETOCLAX
     Dosage: COMPLETED A TOTAL OF 6 CYCLES OF VEN AND AZA THERAPY
     Dates: end: 202303
  11. VENETOCLAX [Suspect]
     Active Substance: VENETOCLAX
     Dosage: UNK (OUTPATIENT BASIS)
  12. VENETOCLAX [Suspect]
     Active Substance: VENETOCLAX
     Dosage: 400 MG, QD (28-DAY CYCLE (VEN PLUS AZA) 1ST CYCLE
  13. VORICONAZOLE [Concomitant]
     Active Substance: VORICONAZOLE
     Indication: Antifungal prophylaxis
  14. POSACONAZOLE [Concomitant]
     Active Substance: POSACONAZOLE
     Indication: Antifungal prophylaxis

REACTIONS (4)
  - Acute myeloid leukaemia [Unknown]
  - Cytopenia [Recovered/Resolved]
  - Tumour lysis syndrome [Unknown]
  - Respiratory tract infection [Unknown]

NARRATIVE: CASE EVENT DATE: 20190101
